FAERS Safety Report 4894079-0 (Version None)
Quarter: 2006Q1

REPORT INFORMATION
  Report Type: 
  Country: None (occurrence: None)
  Receive Date: 20060127
  Receipt Date: 20050620
  Transmission Date: 20060701
  Serious: No
  Sender: FDA-Public Use
  Company Number: US-GLAXOSMITHKLINE-A0563398A

PATIENT
  Age: 33 Year
  Sex: Female

DRUGS (3)
  1. WELLBUTRIN [Suspect]
     Route: 048
  2. BIRTH CONTROL [Concomitant]
  3. AMBIEN [Concomitant]

REACTIONS (2)
  - ANXIETY [None]
  - TINNITUS [None]
